FAERS Safety Report 10902384 (Version 2)
Quarter: 2015Q1

REPORT INFORMATION
  Report Type: Spontaneous
  Country: JP (occurrence: JP)
  Receive Date: 20150310
  Receipt Date: 20150325
  Transmission Date: 20150721
  Serious: Yes (Other)
  Sender: FDA-Public Use
  Company Number: JP-GE HEALTHCARE MEDICAL DIAGNOSTICS-OSCN-PR-1503S-0031

PATIENT
  Age: 74 Year
  Sex: Male

DRUGS (6)
  1. THYRADIN [Concomitant]
     Active Substance: LEVOTHYROXINE
  2. AMLODIN [Concomitant]
     Active Substance: AMLODIPINE BESYLATE
  3. OMNISCAN [Suspect]
     Active Substance: GADODIAMIDE
     Indication: DIAGNOSTIC PROCEDURE
  4. ZYLORIC [Concomitant]
     Active Substance: ALLOPURINOL
  5. TRINOSIN [Concomitant]
     Active Substance: ADENOSINE TRIPHOSPHATE DISODIUM
  6. OMNISCAN [Suspect]
     Active Substance: GADODIAMIDE
     Indication: VIITH NERVE PARALYSIS
     Route: 042
     Dates: start: 20140104, end: 20140104

REACTIONS (3)
  - Thrombocytopenia [Recovered/Resolved]
  - Liver disorder [Recovered/Resolved]
  - Toxic skin eruption [Recovered/Resolved]

NARRATIVE: CASE EVENT DATE: 20140118
